FAERS Safety Report 4769783-5 (Version None)
Quarter: 2005Q3

REPORT INFORMATION
  Report Type: 
  Country: None (occurrence: None)
  Receive Date: 20050915
  Receipt Date: 20050726
  Transmission Date: 20060218
  Serious: Yes (Hospitalization)
  Sender: FDA-Public Use
  Company Number: 2005AP04106

PATIENT
  Age: 23461 Day
  Sex: Female

DRUGS (8)
  1. IRESSA [Suspect]
     Indication: LUNG ADENOCARCINOMA STAGE IV
     Route: 048
     Dates: start: 20050517, end: 20050521
  2. IRESSA [Suspect]
     Indication: NON-SMALL CELL LUNG CANCER STAGE IV
     Route: 048
     Dates: start: 20050517, end: 20050521
  3. IRESSA [Suspect]
     Route: 048
     Dates: start: 20050523, end: 20050721
  4. IRESSA [Suspect]
     Route: 048
     Dates: start: 20050523, end: 20050721
  5. IRESSA [Suspect]
     Route: 048
     Dates: start: 20050801
  6. IRESSA [Suspect]
     Route: 048
     Dates: start: 20050801
  7. CARBOPLATIN [Concomitant]
     Dosage: THREE COURSES
     Dates: start: 20050224
  8. PACLITAXEL [Concomitant]
     Dosage: THREE COURSES
     Dates: start: 20050224

REACTIONS (2)
  - DIARRHOEA [None]
  - PNEUMONIA BACTERIAL [None]
